FAERS Safety Report 10584841 (Version 1)
Quarter: 2014Q4

REPORT INFORMATION
  Report Type: Spontaneous
  Country: US (occurrence: US)
  Receive Date: 20141114
  Receipt Date: 20141114
  Transmission Date: 20150529
  Serious: Yes (Other)
  Sender: FDA-Public Use
  Company Number: US-TEVA-521564USA

PATIENT
  Age: 40 Year
  Sex: Male

DRUGS (11)
  1. CIALIS [Concomitant]
     Active Substance: TADALAFIL
  2. GABAPENTIN. [Concomitant]
     Active Substance: GABAPENTIN
  3. TAMSULOSIN [Concomitant]
     Active Substance: TAMSULOSIN
  4. PROVIGIL [Concomitant]
     Active Substance: MODAFINIL
  5. COPAXONE [Suspect]
     Active Substance: GLATIRAMER ACETATE
     Indication: MULTIPLE SCLEROSIS
     Dosage: 17.1429 MILLIGRAM DAILY;
     Route: 058
     Dates: start: 2014
  6. AMANTADINE [Concomitant]
     Active Substance: AMANTADINE
  7. LISINOPRIL-HCTZ [Concomitant]
     Active Substance: HYDROCHLOROTHIAZIDE\LISINOPRIL
  8. DILTIAZEM [Concomitant]
     Active Substance: DILTIAZEM
  9. PREDNISONE. [Concomitant]
     Active Substance: PREDNISONE
  10. COPAXONE [Suspect]
     Active Substance: GLATIRAMER ACETATE
     Dosage: 17.1429 MILLIGRAM DAILY;
     Route: 058
     Dates: start: 2014
  11. FAMOTIDINE. [Concomitant]
     Active Substance: FAMOTIDINE

REACTIONS (4)
  - Multiple sclerosis [Unknown]
  - Balance disorder [Unknown]
  - Fatigue [Unknown]
  - Visual impairment [Unknown]

NARRATIVE: CASE EVENT DATE: 20141107
